FAERS Safety Report 24367831 (Version 3)
Quarter: 2025Q3

REPORT INFORMATION
  Report Type: Report from Study
  Country: US (occurrence: US)
  Receive Date: 20240926
  Receipt Date: 20250809
  Transmission Date: 20251021
  Serious: Yes (Hospitalization, Other)
  Sender: ALEXION PHARMACEUTICALS
  Company Number: US-AstraZeneca-CH-00700540A

PATIENT
  Age: 69 Year
  Sex: Female

DRUGS (1)
  1. STRENSIQ [Suspect]
     Active Substance: ASFOTASE ALFA
     Indication: Hypophosphatasia
     Route: 065

REACTIONS (4)
  - Myocardial necrosis marker increased [Unknown]
  - Respiratory distress [Unknown]
  - Bronchial hyperreactivity [Unknown]
  - Asthma [Unknown]

NARRATIVE: CASE EVENT DATE: 20240801
